FAERS Safety Report 17170733 (Version 1)
Quarter: 2019Q4

REPORT INFORMATION
  Report Type: Report from Study
  Country: IT (occurrence: IT)
  Receive Date: 20191218
  Receipt Date: 20191218
  Transmission Date: 20200122
  Serious: Yes (Hospitalization, Other)
  Sender: FDA-Public Use
  Company Number: IT-MYLANLABS-2019M1125380

PATIENT
  Age: 57 Year
  Sex: Male

DRUGS (1)
  1. FONDAPARINUX [Suspect]
     Active Substance: FONDAPARINUX
     Indication: VENOUS THROMBOSIS LIMB
     Dosage: 1 DOSAGE FORM, QD
     Route: 058
     Dates: start: 20191028, end: 20191128

REACTIONS (3)
  - Blood bilirubin increased [Recovering/Resolving]
  - Product use issue [Unknown]
  - Jaundice [Recovering/Resolving]

NARRATIVE: CASE EVENT DATE: 20191128
